FAERS Safety Report 10159038 (Version 1)
Quarter: 2014Q2

REPORT INFORMATION
  Report Type: Report from Study
  Country: US (occurrence: US)
  Receive Date: 20140508
  Receipt Date: 20140508
  Transmission Date: 20141212
  Serious: Yes (Other)
  Sender: FDA-Public Use
  Company Number: US-IPSEN BIOPHARMACEUTICALS, INC.-2014-2188

PATIENT
  Age: 7 Year
  Sex: Male
  Weight: 17.3 kg

DRUGS (3)
  1. INCRELEX [Suspect]
     Indication: GROWTH RETARDATION
     Route: 058
     Dates: start: 20070530, end: 20081103
  2. INCRELEX [Suspect]
     Indication: OFF LABEL USE
  3. GROWTH HORMONE [Concomitant]
     Indication: PRODUCT USED FOR UNKNOWN INDICATION
     Dosage: 0.4 MG/KG
     Route: 065
     Dates: start: 2008

REACTIONS (2)
  - Osteonecrosis [Recovered/Resolved]
  - Drug dose omission [Unknown]
